FAERS Safety Report 20628546 (Version 1)
Quarter: 2022Q1

REPORT INFORMATION
  Report Type: Spontaneous
  Country: US (occurrence: US)
  Receive Date: 20220323
  Receipt Date: 20220323
  Transmission Date: 20220423
  Serious: Yes (Other)
  Sender: FDA-Public Use
  Company Number: US-JNJFOC-20220341118

PATIENT
  Age: 39 Year
  Sex: Female

DRUGS (1)
  1. INVEGA [Suspect]
     Active Substance: PALIPERIDONE
     Indication: Product used for unknown indication
     Route: 048

REACTIONS (8)
  - Tardive dyskinesia [Unknown]
  - Bipolar disorder [Unknown]
  - Suicidal ideation [Unknown]
  - Parkinson^s disease [Unknown]
  - Sexual dysfunction [Unknown]
  - Infertility [Unknown]
  - Vision blurred [Unknown]
  - Insomnia [Unknown]
